FAERS Safety Report 8044379 (Version 4)
Quarter: 2012Q4

REPORT INFORMATION
  Report Type: Report from Study
  Country: US (occurrence: US)
  Receive Date: 20110719
  Receipt Date: 20120911
  Transmission Date: 20130627
  Serious: Yes (Other)
  Sender: FDA-Public Use
  Company Number: US-RB-030159-11

PATIENT
  Age: 0 None
  Sex: Male
  Weight: 3.12 kg

DRUGS (4)
  1. SUBOXONE TABLET [Suspect]
     Indication: DRUG DEPENDENCE
     Dosage: 4-8 mg intermittently daily
     Route: 064
     Dates: start: 200908, end: 20100529
  2. ZOLOFT [Suspect]
     Indication: DEPRESSION
     Dosage: Dosing details not provided
     Route: 064
     Dates: start: 200911, end: 200911
  3. NICOTINE [Suspect]
     Indication: NICOTINE DEPENDENCE
     Dosage: Dosing details not provided
     Route: 064
     Dates: start: 200908, end: 20100529
  4. OPIATES [Suspect]
     Indication: DRUG DEPENDENCE
     Dosage: Dosing details not provided
     Route: 064
     Dates: end: 20100529

REACTIONS (10)
  - Foetal exposure during pregnancy [Recovered/Resolved]
  - Wolff-Parkinson-White syndrome [Not Recovered/Not Resolved]
  - Feeding disorder neonatal [Recovered/Resolved]
  - Drug withdrawal syndrome neonatal [Recovered/Resolved]
  - Tachycardia [Not Recovered/Not Resolved]
  - Speech disorder developmental [Recovered/Resolved]
  - Maternal drugs affecting foetus [None]
  - Neonatal tachycardia [None]
  - Developmental delay [None]
  - Gene mutation [None]
